FAERS Safety Report 12810019 (Version 1)
Quarter: 2016Q4

REPORT INFORMATION
  Report Type: Spontaneous
  Country: US (occurrence: US)
  Receive Date: 20161005
  Receipt Date: 20161005
  Transmission Date: 20170207
  Serious: Yes (Hospitalization, Other)
  Sender: FDA-Public Use
  Company Number: US-BRISTOL-MYERS SQUIBB COMPANY-BMS-2016-078992

PATIENT
  Age: 82 Year
  Sex: Female

DRUGS (4)
  1. COUMADIN [Suspect]
     Active Substance: WARFARIN SODIUM
     Dosage: 4 MG, UNK
     Route: 065
  2. COUMADIN [Suspect]
     Active Substance: WARFARIN SODIUM
     Dosage: 4 UNK, UNK,4 MG ONE DAY A WEEK
     Route: 065
  3. COUMADIN [Suspect]
     Active Substance: WARFARIN SODIUM
     Dosage: 6 UNK, UNK,6 MG SIX DAYS A WEEK
     Route: 065
  4. COUMADIN [Suspect]
     Active Substance: WARFARIN SODIUM
     Indication: ATRIAL FIBRILLATION
     Dosage: 6 MG, UNK
     Route: 065

REACTIONS (9)
  - Ecchymosis [Unknown]
  - Biliary tract operation [Unknown]
  - Haemorrhage [Unknown]
  - Liver function test increased [Unknown]
  - Epistaxis [Unknown]
  - Cholecystectomy [Unknown]
  - International normalised ratio increased [Unknown]
  - Pruritus [Unknown]
  - Insomnia [Unknown]

NARRATIVE: CASE EVENT DATE: 20160713
